FAERS Safety Report 9286010 (Version 1)
Quarter: 2013Q2

REPORT INFORMATION
  Report Type: Spontaneous
  Country: BR (occurrence: BR)
  Receive Date: 20130513
  Receipt Date: 20130513
  Transmission Date: 20140414
  Serious: Yes (Death, Other)
  Sender: FDA-Public Use
  Company Number: BR-ASTRAZENECA-2013SE32387

PATIENT
  Sex: Female

DRUGS (6)
  1. PULMICORT RESPULES [Suspect]
     Indication: ASTHMA
     Dosage: THREE TIMES A DAY
     Route: 055
  2. BEROTEC [Suspect]
     Indication: ASTHMA
     Dosage: THREE TIMES A DAY
  3. ATROVENT [Suspect]
     Indication: ASTHMA
     Dosage: THREE TIMES A DAY
  4. OLMETEC HCT [Concomitant]
     Dates: start: 2008, end: 2010
  5. LOSARTAN [Concomitant]
     Dates: start: 2010
  6. ATENSINA [Concomitant]
     Dates: start: 2010

REACTIONS (2)
  - Respiratory failure [Fatal]
  - Pulmonary fibrosis [Not Recovered/Not Resolved]
